FAERS Safety Report 5230444-X (Version None)
Quarter: 2007Q1

REPORT INFORMATION
  Report Type: 
  Country: None (occurrence: None)
  Receive Date: 20070206
  Receipt Date: 20070130
  Transmission Date: 20070707
  Serious: Yes (Death, Life-Threatening)
  Sender: FDA-Public Use
  Company Number: GBWYE426630JAN07

PATIENT
  Age: 66 Year
  Sex: Female

DRUGS (7)
  1. IBUPROFEN [Suspect]
     Indication: PAIN
     Route: 048
     Dates: start: 20060910, end: 20060911
  2. ASPIRIN [Concomitant]
     Indication: PROPHYLAXIS
     Dosage: 75 MG (UNKNOWN FREQUENCY)
     Route: 048
  3. SEREVENT [Concomitant]
     Indication: CHRONIC OBSTRUCTIVE PULMONARY DISEASE
     Dosage: UNKNOWN
     Route: 055
  4. DOXYCYCLINE HYDROCHLORIDE [Concomitant]
     Dosage: 100MG (UNKNOWN FREQUENCY)
     Route: 048
  5. SALBUTAMOL [Concomitant]
     Indication: CHRONIC OBSTRUCTIVE PULMONARY DISEASE
     Dosage: UNKNOWN
     Route: 055
  6. DICLOFENAC SODIUM [Suspect]
     Dosage: AS NECESSARY
     Route: 030
  7. CLARITHROMYCIN [Concomitant]
     Indication: INFECTION
     Dosage: 500MG (UNKNOWN FREQUENCY)
     Route: 048
     Dates: start: 20060910

REACTIONS (2)
  - GASTRIC ULCER [None]
  - GASTRIC ULCER HAEMORRHAGE [None]
